FAERS Safety Report 6356426-2 (Version None)
Quarter: 2009Q3

REPORT INFORMATION
  Report Type: 
  Country: None (occurrence: None)
  Receive Date: 20090911
  Receipt Date: 20090911
  Transmission Date: 20100115
  Serious: No
  Sender: FDA-Public Use
  Company Number: None

PATIENT
  Sex: Female
  Weight: 29.5 kg

DRUGS (3)
  1. PULMICORT [Suspect]
     Indication: CYSTIC FIBROSIS
     Dosage: .5MG/SML DAILY OR AS NEEDED NEBULIZER
     Dates: start: 20030101
  2. PULMOZYME [Suspect]
     Indication: CYSTIC FIBROSIS
     Dosage: 2.5MG DAILY OR AS NEEDED NEBULIZER
     Dates: start: 20030101
  3. XOPENEX [Concomitant]

REACTIONS (8)
  - AGGRESSION [None]
  - CRYING [None]
  - DISTURBANCE IN ATTENTION [None]
  - EMOTIONAL DISORDER [None]
  - INSOMNIA [None]
  - MIDDLE INSOMNIA [None]
  - PSYCHOMOTOR HYPERACTIVITY [None]
  - SLEEP DISORDER [None]
